FAERS Safety Report 6961296-5 (Version None)
Quarter: 2010Q3

REPORT INFORMATION
  Report Type: 
  Country: None (occurrence: None)
  Receive Date: 20100901
  Receipt Date: 20100825
  Transmission Date: 20110219
  Serious: Yes (Hospitalization)
  Sender: FDA-Public Use
  Company Number: A0878483A

PATIENT
  Age: 50 Year
  Sex: Female

DRUGS (2)
  1. AVANDIA [Suspect]
     Dosage: 4MG PER DAY
     Dates: start: 20031219
  2. AVANDAMET [Suspect]
     Dosage: 2TAB TWICE PER DAY
     Dates: start: 20030904

REACTIONS (1)
  - CEREBROVASCULAR ACCIDENT [None]
